FAERS Safety Report 13894057 (Version 1)
Quarter: 2017Q3

REPORT INFORMATION
  Report Type: Spontaneous
  Country: US (occurrence: US)
  Receive Date: 20170822
  Receipt Date: 20170822
  Transmission Date: 20171127
  Serious: No
  Sender: FDA-Public Use
  Company Number: GXBR2017US002196

PATIENT
  Sex: Female

DRUGS (1)
  1. OXISTAT [Suspect]
     Active Substance: OXICONAZOLE NITRATE
     Indication: SKIN LESION
     Dosage: UNK
     Route: 061

REACTIONS (2)
  - Erythema [Recovered/Resolved]
  - Skin burning sensation [Recovered/Resolved]
